FAERS Safety Report 9549157 (Version 5)
Quarter: 2016Q1

REPORT INFORMATION
  Report Type: Report from Study
  Country: PL (occurrence: PL)
  Receive Date: 20130924
  Receipt Date: 20160315
  Transmission Date: 20160526
  Serious: Yes (Hospitalization)
  Sender: FDA-Public Use
  Company Number: PL-UCBSA-098120

PATIENT
  Age: 60 Year
  Sex: Female
  Weight: 60.7 kg

DRUGS (6)
  1. IBUPROFEN. [Concomitant]
     Active Substance: IBUPROFEN
     Indication: RESTLESS LEGS SYNDROME
     Dosage: 200 MG, ONCE DAILY (QD)
     Route: 048
     Dates: start: 201301
  2. CERTOLIZUMAB PEGOL RA [Suspect]
     Active Substance: CERTOLIZUMAB PEGOL
     Indication: RHEUMATOID ARTHRITIS
     Route: 058
     Dates: end: 20130910
  3. CLONAZEPAM. [Concomitant]
     Active Substance: CLONAZEPAM
     Indication: MALAISE
     Dosage: 1 MG, AS NEEDED (PRN)
     Route: 048
     Dates: start: 1993
  4. TREXAN [Concomitant]
     Active Substance: METHOTREXATE SODIUM
     Indication: RESTLESS LEGS SYNDROME
     Dosage: 10 MG, ONCE DAILY (QD)
     Dates: start: 201301
  5. AC. FOLICUM [Concomitant]
     Indication: RESTLESS LEGS SYNDROME
     Dosage: 15 MG, ONCE DAILY (QD)
     Route: 048
     Dates: start: 201301
  6. TUSOPT [Concomitant]
     Indication: GLAUCOMA
     Dosage: 1 GTT, ONCE DAILY (QD)
     Dates: start: 2001

REACTIONS (1)
  - Urinary tract infection [Not Recovered/Not Resolved]

NARRATIVE: CASE EVENT DATE: 20130913
